FAERS Safety Report 7156981-9 (Version None)
Quarter: 2010Q4

REPORT INFORMATION
  Report Type: 
  Country: None (occurrence: None)
  Receive Date: 20101214
  Receipt Date: 20100112
  Transmission Date: 20110411
  Serious: No
  Sender: FDA-Public Use
  Company Number: US-ASTRAZENECA-2010SE01403

PATIENT
  Age: 62 Year
  Sex: Female
  Weight: 93.4 kg

DRUGS (5)
  1. CRESTOR [Suspect]
     Route: 048
     Dates: start: 20090801, end: 20100111
  2. AVALIDE [Concomitant]
     Indication: BLOOD PRESSURE
  3. FLEXERIL [Concomitant]
     Indication: MUSCULOSKELETAL STIFFNESS
  4. POTASSIUM CHLORIDE [Concomitant]
  5. LASID [Concomitant]

REACTIONS (4)
  - DIARRHOEA [None]
  - MUSCULAR WEAKNESS [None]
  - MYALGIA [None]
  - VISION BLURRED [None]
